FAERS Safety Report 8533006-1 (Version None)
Quarter: 2012Q3

REPORT INFORMATION
  Report Type: 
  Country: None (occurrence: None)
  Receive Date: 20120712
  Receipt Date: 20120703
  Transmission Date: 20120928
  Serious: Yes (Hospitalization)
  Sender: FDA-Public Use
  Company Number: 2012HGS-003792

PATIENT
  Age: 27 Year
  Sex: Female
  Weight: 68.0396 kg

DRUGS (8)
  1. XANAX [Concomitant]
  2. ASPIRIN [Concomitant]
  3. IMURAN [Concomitant]
  4. BENLYSTA [Suspect]
     Indication: SYSTEMIC LUPUS ERYTHEMATOSUS
     Dosage: INTRAVENOUS DRIP
     Route: 041
     Dates: start: 20120418
  5. ATIVAN [Concomitant]
  6. PROZAC [Concomitant]
  7. ZOLOFT [Concomitant]
  8. WELLBUTRIN [Concomitant]

REACTIONS (5)
  - FEELING HOT [None]
  - TREMOR [None]
  - FEELING JITTERY [None]
  - DYSTONIA [None]
  - CONDITION AGGRAVATED [None]
